FAERS Safety Report 9373528 (Version 2)
Quarter: 2013Q3

REPORT INFORMATION
  Report Type: Spontaneous
  Country: US (occurrence: US)
  Receive Date: 20130627
  Receipt Date: 20130821
  Transmission Date: 20140515
  Serious: Yes (Other)
  Sender: FDA-Public Use
  Company Number: PHEH2013US013770

PATIENT
  Age: 47 Year
  Sex: Female
  Weight: 81 kg

DRUGS (6)
  1. AFINITOR [Suspect]
     Indication: BREAST CANCER METASTATIC
     Dosage: 10 MG, UNK
     Route: 048
     Dates: start: 20130228, end: 20130611
  2. ACE INHIBITOR NOS [Concomitant]
  3. DIURETICS [Concomitant]
  4. VITAMIN D [Concomitant]
  5. EXEMESTANE [Concomitant]
     Indication: BREAST CANCER METASTATIC
     Dosage: 25 MG, UNK
     Route: 048
     Dates: start: 20130328
  6. GOSERELIN [Concomitant]
     Indication: BREAST CANCER METASTATIC
     Dosage: 3.6 MG, UNK
     Route: 058
     Dates: start: 200904

REACTIONS (3)
  - Micturition urgency [Recovering/Resolving]
  - Proteinuria [Recovering/Resolving]
  - Chromaturia [Recovering/Resolving]
